FAERS Safety Report 18907331 (Version 1)
Quarter: 2021Q1

REPORT INFORMATION
  Report Type: Spontaneous
  Country: US (occurrence: US)
  Receive Date: 20210217
  Receipt Date: 20210217
  Transmission Date: 20210420
  Serious: No
  Sender: FDA-Public Use
  Company Number: US-VALIDUS PHARMACEUTICALS LLC-US-2020VAL000685

PATIENT
  Age: 76 Year
  Sex: Male
  Weight: 76.64 kg

DRUGS (5)
  1. POMALYST [Suspect]
     Active Substance: POMALIDOMIDE
     Dosage: 2 MG, QD
     Route: 048
     Dates: start: 202005
  2. LASIX [Suspect]
     Active Substance: FUROSEMIDE
     Indication: DIZZINESS
     Dosage: UNK, BID (2 IN 1 D)
     Route: 065
  3. POMALYST [Suspect]
     Active Substance: POMALIDOMIDE
     Indication: PLASMA CELL MYELOMA
     Dosage: 4 MG, QD (1 IN 1 D)
     Route: 048
     Dates: start: 201807
  4. LASIX [Suspect]
     Active Substance: FUROSEMIDE
     Dosage: UNK, BID EVERY THIRD DAY
     Route: 065
  5. POMALYST [Suspect]
     Active Substance: POMALIDOMIDE
     Dosage: 2 MG, QD
     Route: 048
     Dates: start: 20200209

REACTIONS (2)
  - Dizziness [Not Recovered/Not Resolved]
  - Off label use [Unknown]

NARRATIVE: CASE EVENT DATE: 202004
